FAERS Safety Report 24088124 (Version 1)
Quarter: 2024Q3

REPORT INFORMATION
  Report Type: Report from Study
  Country: US (occurrence: US)
  Receive Date: 20240715
  Receipt Date: 20240715
  Transmission Date: 20241016
  Serious: Yes (Other)
  Sender: INSMED
  Company Number: US-INSMED, INC.-2024-01530-US

PATIENT
  Sex: Female

DRUGS (1)
  1. ARIKAYCE [Suspect]
     Active Substance: AMIKACIN
     Indication: Mycobacterium avium complex infection
     Dosage: 590 MILLIGRAM, QD
     Route: 055
     Dates: start: 20240410

REACTIONS (16)
  - Pulmonary function test decreased [Unknown]
  - Sputum retention [Unknown]
  - Oliguria [Not Recovered/Not Resolved]
  - Vision blurred [Not Recovered/Not Resolved]
  - Tendonitis [Unknown]
  - Palpitations [Not Recovered/Not Resolved]
  - Head discomfort [Unknown]
  - Dysgeusia [Recovered/Resolved]
  - Unevaluable event [Unknown]
  - Cough [Recovered/Resolved]
  - Cough [Not Recovered/Not Resolved]
  - Nausea [Recovered/Resolved]
  - Oropharyngeal pain [Not Recovered/Not Resolved]
  - Dysphonia [Not Recovered/Not Resolved]
  - Headache [Not Recovered/Not Resolved]
  - Haemoptysis [Recovered/Resolved]

NARRATIVE: CASE EVENT DATE: 20240101
